FAERS Safety Report 8407357 (Version 3)
Quarter: 2012Q4

REPORT INFORMATION
  Report Type: Report from Study
  Country: JP (occurrence: JP)
  Receive Date: 20120215
  Receipt Date: 20121120
  Transmission Date: 20130627
  Serious: Yes (Death, Other)
  Sender: FDA-Public Use
  Company Number: JP-ABBOTT-12P-087-0903981-00

PATIENT
  Age: 58 Year
  Sex: Male
  Weight: 65.4 kg

DRUGS (7)
  1. HUMIRA 40 MG/ 0.8 ML PRE-FILLED SYRINGE [Suspect]
     Indication: RHEUMATOID ARTHRITIS
     Route: 058
     Dates: start: 20120104, end: 20120131
  2. METHOTREXATE [Concomitant]
     Indication: RHEUMATOID ARTHRITIS
     Route: 048
     Dates: start: 201111, end: 20120213
  3. FOLIC ACID [Concomitant]
     Indication: PROPHYLAXIS
     Dosage: Daily
     Route: 048
     Dates: end: 20120213
  4. DICLOFENAC SODIUM [Concomitant]
     Indication: RHEUMATOID ARTHRITIS
     Dosage: Daily
     Route: 048
     Dates: end: 20120213
  5. LANSOPRAZOLE [Concomitant]
     Indication: GASTROINTESTINAL DISORDER
     Dosage: Daily
     Route: 048
     Dates: end: 20120213
  6. BROTIZOLAM [Concomitant]
     Indication: INSOMNIA
     Dosage: Daily
     Route: 048
     Dates: end: 20120213
  7. AMLODIPINE BESILATE [Concomitant]
     Indication: HYPERTENSION
     Dosage: Daily
     Route: 048
     Dates: end: 20120213

REACTIONS (4)
  - Completed suicide [Fatal]
  - Depression [Unknown]
  - Dyspnoea [Unknown]
  - Decreased appetite [Unknown]
